FAERS Safety Report 7367392-5 (Version None)
Quarter: 2011Q1

REPORT INFORMATION
  Report Type: 
  Country: None (occurrence: None)
  Receive Date: 20110322
  Receipt Date: 20110224
  Transmission Date: 20110831
  Serious: No
  Sender: FDA-Public Use
  Company Number: US-B.I. PHARMACEUTICALS,INC./RIDGEFIELD-2011-BP-06760BP

PATIENT
  Age: 37 Year
  Sex: Male

DRUGS (2)
  1. SPIRIVA [Suspect]
  2. INHALED CORTICOSTEROIDS [Concomitant]
     Route: 055

REACTIONS (2)
  - PSYCHOTIC DISORDER [None]
  - HALLUCINATION, AUDITORY [None]
